FAERS Safety Report 10531447 (Version 2)
Quarter: 2014Q4

REPORT INFORMATION
  Report Type: Report from Study
  Country: VE (occurrence: VE)
  Receive Date: 20141021
  Receipt Date: 20141021
  Transmission Date: 20150529
  Serious: Yes (Death)
  Sender: FDA-Public Use
  Company Number: PHHY2013VE072888

PATIENT
  Age: 73 Year
  Sex: Female

DRUGS (10)
  1. GRANOCYTE [Concomitant]
     Active Substance: LENOGRASTIM
     Indication: DIARRHOEA
     Dosage: UNK UKN, EVERY 2 DAYS
     Route: 030
  2. RECORMON//ERYTHROPOIETIN HUMAN [Concomitant]
     Indication: MYELODYSPLASTIC SYNDROME
     Dosage: 1 DF, QW
     Route: 058
  3. CLOROTRIMETON [Concomitant]
     Dosage: UNK,EVERY CHEMOTHERAPIES CYCLE
     Route: 030
     Dates: start: 2012
  4. ESOMEPRAZOLE [Concomitant]
     Active Substance: ESOMEPRAZOLE
     Indication: GASTRIC DISORDER
     Dosage: 40 MG, DAILY
     Route: 048
     Dates: start: 2013
  5. EXJADE [Suspect]
     Active Substance: DEFERASIROX
     Indication: MYELODYSPLASTIC SYNDROME
     Dosage: 500 MG, DAILY
     Route: 048
     Dates: end: 20130629
  6. EXJADE [Suspect]
     Active Substance: DEFERASIROX
     Dosage: 1000 MG, DAILY
     Route: 048
     Dates: start: 2013, end: 20130629
  7. EXJADE [Suspect]
     Active Substance: DEFERASIROX
     Dosage: 500 UNK, UNK
     Route: 048
  8. ONDANSETRON [Concomitant]
     Active Substance: ONDANSETRON
     Dosage: 8 MG, EVERY CHEMOTHERAPIES CYCLE
     Route: 030
     Dates: start: 2012
  9. EXJADE [Suspect]
     Active Substance: DEFERASIROX
     Dosage: 1000 MG, DAILY
     Route: 048
     Dates: start: 20130713
  10. GRANOCYTE [Concomitant]
     Active Substance: LENOGRASTIM
     Indication: MYELODYSPLASTIC SYNDROME

REACTIONS (2)
  - Diarrhoea [Recovering/Resolving]
  - Death [Fatal]

NARRATIVE: CASE EVENT DATE: 20130629
